FAERS Safety Report 26181010 (Version 2)
Quarter: 2025Q4

REPORT INFORMATION
  Report Type: Spontaneous
  Country: US (occurrence: US)
  Receive Date: 20251221
  Receipt Date: 20251230
  Transmission Date: 20260117
  Serious: No
  Sender: Harrow Health
  Company Number: US-HARROW-HAR-2025-US-01664

PATIENT
  Sex: Female

DRUGS (2)
  1. VEVYE [Suspect]
     Active Substance: CYCLOSPORINE
     Indication: Lacrimation increased
  2. VEVYE [Suspect]
     Active Substance: CYCLOSPORINE

REACTIONS (2)
  - Drug ineffective [Unknown]
  - Eye irritation [Unknown]
